FAERS Safety Report 8785161 (Version 1)
Quarter: 2012Q4

REPORT INFORMATION
  Report Type: 
  Country: US (occurrence: US)
  Receive Date: 20120914
  Receipt Date: 20120914
  Transmission Date: 20130627
  Serious: No
  Sender: FDA-Public Use
  Company Number: US-009507513-1208USA004832

PATIENT

DRUGS (3)
  1. PEG-INTRON [Suspect]
     Indication: HEPATITIS C
     Dosage: UNK
     Dates: start: 20120721
  2. REBETOL [Suspect]
     Indication: HEPATITIS C
     Dosage: UNK
     Dates: start: 20120722
  3. TELAPREVIR [Concomitant]
     Indication: HEPATITIS C
     Dosage: UNK
     Dates: start: 20120722

REACTIONS (4)
  - Night sweats [Unknown]
  - Somnolence [Unknown]
  - Chills [Unknown]
  - Headache [Unknown]
